FAERS Safety Report 5724654-2 (Version None)
Quarter: 2008Q2

REPORT INFORMATION
  Report Type: 
  Country: None (occurrence: None)
  Receive Date: 20080430
  Receipt Date: 20080430
  Transmission Date: 20081010
  Serious: Yes (Other)
  Sender: FDA-Public Use
  Company Number: None

PATIENT
  Age: 66 Year
  Sex: Male
  Weight: 136.0791 kg

DRUGS (2)
  1. DIGITEK 0.25 BERTEK PHARMACEUTICALS [Suspect]
     Indication: ANGIOPLASTY
     Dosage: 0.25 MGS ONE TAB DAILY PO
     Route: 048
     Dates: start: 20070815, end: 20080428
  2. DIGITEK 0.25 BERTEK PHARMACEUTICALS [Suspect]
     Indication: ATRIAL FIBRILLATION
     Dosage: 0.25 MGS ONE TAB DAILY PO
     Route: 048
     Dates: start: 20070815, end: 20080428

REACTIONS (6)
  - ASTHENIA [None]
  - DYSPNOEA [None]
  - FATIGUE [None]
  - LETHARGY [None]
  - LISTLESS [None]
  - SOMNOLENCE [None]
